FAERS Safety Report 8557461-6 (Version None)
Quarter: 2012Q3

REPORT INFORMATION
  Report Type: 
  Country: None (occurrence: None)
  Receive Date: 20120801
  Receipt Date: 20120723
  Transmission Date: 20120928
  Serious: Yes (Hospitalization, Other)
  Sender: FDA-Public Use
  Company Number: US-B.I. PHARMACEUTICALS,INC./RIDGEFIELD-2012-BP-10339BP

PATIENT
  Sex: Male

DRUGS (13)
  1. OMEPRAZOLE [Concomitant]
     Dates: start: 20010101
  2. GABAPENTIN [Concomitant]
     Dates: start: 20120322
  3. FUROSEMIDE [Concomitant]
     Dates: start: 20050101
  4. ASPIRIN [Concomitant]
     Dates: start: 20120322
  5. APIXABAN [Suspect]
     Indication: EMBOLISM
     Route: 048
     Dates: start: 20110519
  6. BACLOFEN [Concomitant]
     Dates: start: 20111021
  7. FLOMAX [Suspect]
     Indication: BENIGN PROSTATIC HYPERPLASIA
     Dosage: 0.4 MG
     Route: 048
     Dates: start: 20120217
  8. COREG [Suspect]
     Indication: CARDIAC DISORDER
     Dosage: 6.25 MG
     Route: 048
     Dates: start: 20050101
  9. PLACEBO [Suspect]
     Indication: EMBOLISM
     Route: 048
     Dates: start: 20110519
  10. ROSUVASTATIN [Concomitant]
     Dates: start: 20120320
  11. QUINAPRIL [Concomitant]
     Dates: start: 20050101
  12. MAGNESIUM HYDROXIDE TAB [Concomitant]
     Dates: start: 20120320
  13. AUGMENTIN '500' [Concomitant]
     Dates: start: 20120320

REACTIONS (3)
  - PRESYNCOPE [None]
  - BRADYCARDIA [None]
  - DIVERTICULITIS [None]
